FAERS Safety Report 6390802-7 (Version None)
Quarter: 2009Q4

REPORT INFORMATION
  Report Type: 
  Country: None (occurrence: None)
  Receive Date: 20091001
  Receipt Date: 20090807
  Transmission Date: 20100525
  Serious: No
  Sender: FDA-Public Use
  Company Number: 1000008055

PATIENT
  Age: 58 Year
  Sex: Male

DRUGS (6)
  1. BYSTOLIC [Suspect]
     Indication: HYPERTENSION
     Dosage: 2.5 MG (2.5 MG, 1 IN 1 D), ORAL
     Route: 048
     Dates: start: 20090720
  2. ZOCOR [Concomitant]
  3. ZETIA [Concomitant]
  4. ANDROGEL [Concomitant]
  5. FISH OIL [Concomitant]
  6. VITAMIN B-12 COMPLEX [Concomitant]

REACTIONS (1)
  - CONSTIPATION [None]
